FAERS Safety Report 15167347 (Version 1)
Quarter: 2018Q3

REPORT INFORMATION
  Report Type: Report from Study
  Country: ES (occurrence: ES)
  Receive Date: 20180719
  Receipt Date: 20180719
  Transmission Date: 20181010
  Serious: Yes (Hospitalization)
  Sender: FDA-Public Use
  Company Number: ES-TEVA-2018-ES-928548

PATIENT
  Age: 35 Year
  Sex: Female

DRUGS (5)
  1. ONDANSETRON (2575A) [Suspect]
     Active Substance: ONDANSETRON
     Dosage: 4 MG EVERY 24 HOURS, WITH CHANGE TO 8 MG IN CONTINUOUS PERFUSION, THEN 4 MG EVERY 8 HOURS AND THEN 4
     Route: 042
     Dates: start: 20170303, end: 20170308
  2. METAMIZOL (111A) [Concomitant]
     Active Substance: METAMIZOL SODIUM
     Dosage: 2 GR EVERY 6 HOURS
     Route: 065
     Dates: start: 20170224, end: 20170603
  3. PARACETAMOL (12A) [Concomitant]
     Active Substance: ACETAMINOPHEN
     Dosage: 1 GR EVERY 6 HOURS
     Route: 065
     Dates: start: 20170223, end: 20170422
  4. PANTOPRAZOL (7275A) [Concomitant]
     Active Substance: PANTOPRAZOLE
     Dosage: 40 MG EVERY 24 HOURS
     Route: 065
     Dates: start: 20170223, end: 20170308
  5. MORFINA (1982A) [Concomitant]
     Dosage: 2 MG EVERY 4 HOURS
     Route: 065
     Dates: start: 20170226, end: 20170308

REACTIONS (1)
  - Hepatitis [Recovered/Resolved]

NARRATIVE: CASE EVENT DATE: 20170303
